FAERS Safety Report 6209093-2 (Version None)
Quarter: 2009Q2

REPORT INFORMATION
  Report Type: 
  Country: None (occurrence: None)
  Receive Date: 20090522
  Receipt Date: 20090210
  Transmission Date: 20091009
  Serious: No
  Sender: FDA-Public Use
  Company Number: 8042824

PATIENT
  Age: 73 Year
  Sex: Female

DRUGS (3)
  1. CIMZIA [Suspect]
     Dosage: 400 MG 1/2W SC : 400 MG /M SC : 200 MG SC
     Route: 058
     Dates: start: 20080731, end: 20080828
  2. CIMZIA [Suspect]
     Dosage: 400 MG 1/2W SC : 400 MG /M SC : 200 MG SC
     Route: 058
     Dates: start: 20080925, end: 20081201
  3. CIMZIA [Suspect]
     Dosage: 400 MG 1/2W SC : 400 MG /M SC : 200 MG SC
     Route: 058
     Dates: start: 20090116

REACTIONS (3)
  - PRODUCTIVE COUGH [None]
  - PYREXIA [None]
  - SINUSITIS [None]
